FAERS Safety Report 6383426-9 (Version None)
Quarter: 2009Q3

REPORT INFORMATION
  Report Type: 
  Country: None (occurrence: None)
  Receive Date: 20090924
  Receipt Date: 20090611
  Transmission Date: 20100115
  Serious: No
  Sender: FDA-Public Use
  Company Number: US-CVT-090357

PATIENT
  Age: 59 Year
  Sex: Female

DRUGS (14)
  1. RANEXA [Suspect]
     Indication: ANGINA PECTORIS
     Dosage: 500 MG, BID : 250 MG, BID : 500 MG, QD
     Dates: start: 20090306, end: 20090402
  2. RANEXA [Suspect]
     Indication: ANGINA PECTORIS
     Dosage: 500 MG, BID : 250 MG, BID : 500 MG, QD
     Dates: start: 20090403, end: 20090527
  3. RANEXA [Suspect]
     Indication: ANGINA PECTORIS
     Dosage: 500 MG, BID : 250 MG, BID : 500 MG, QD
     Dates: start: 20090528
  4. ARIMIDEX [Concomitant]
  5. ASCORBIC ACID [Concomitant]
  6. VITAMIN D [Concomitant]
  7. ASPIRIN [Concomitant]
  8. COREG [Concomitant]
  9. HYDROCHLOROTHIAZIDE [Concomitant]
  10. FISH OIL (FISH OIL) [Concomitant]
  11. PAROXETINE HCL [Concomitant]
  12. CRESTOR [Concomitant]
  13. DIOVAN [Concomitant]
  14. NITROGLYCERIN [Concomitant]

REACTIONS (5)
  - CHRONIC OBSTRUCTIVE PULMONARY DISEASE [None]
  - FEELING ABNORMAL [None]
  - HEADACHE [None]
  - INSOMNIA [None]
  - WRONG TECHNIQUE IN DRUG USAGE PROCESS [None]
